FAERS Safety Report 6269985-5 (Version None)
Quarter: 2009Q3

REPORT INFORMATION
  Report Type: 
  Country: None (occurrence: None)
  Receive Date: 20090714
  Receipt Date: 20090629
  Transmission Date: 20100115
  Serious: Yes (Other)
  Sender: FDA-Public Use
  Company Number: 8048614

PATIENT
  Age: 51 Year
  Sex: Male

DRUGS (12)
  1. PREDNISOLONE [Suspect]
     Dates: start: 20040801
  2. RITUXIMAB [Suspect]
     Dates: start: 20040801
  3. RITUXIMAB [Suspect]
     Dates: start: 20060301
  4. CARMUSTINE [Suspect]
     Indication: CHEMOTHERAPY
     Dates: start: 20060801
  5. CYCLOPHOSPHAMIDE [Suspect]
     Indication: B-CELL LYMPHOMA
     Dates: start: 20040801
  6. VINCRISTINE [Suspect]
     Indication: B-CELL LYMPHOMA
     Dates: start: 20040801
  7. CYTARABINE [Suspect]
     Indication: DIFFUSE LARGE B-CELL LYMPHOMA
     Dates: start: 20060301
  8. ETOPOSIDE [Suspect]
     Indication: DIFFUSE LARGE B-CELL LYMPHOMA
     Dates: start: 20060301
  9. ETOPOSIDE [Suspect]
     Indication: DIFFUSE LARGE B-CELL LYMPHOMA
     Dates: start: 20060801
  10. IFOSFAMIDE [Suspect]
     Indication: DIFFUSE LARGE B-CELL LYMPHOMA
     Dates: start: 20060301
  11. MELPHALAN [Suspect]
     Indication: CHEMOTHERAPY
     Dates: start: 20060801
  12. CYTARABINE [Suspect]
     Indication: CHEMOTHERAPY
     Dates: start: 20060801

REACTIONS (3)
  - CYTOMEGALOVIRUS COLITIS [None]
  - DIFFUSE LARGE B-CELL LYMPHOMA [None]
  - STEM CELL TRANSPLANT [None]
